FAERS Safety Report 5022837-0 (Version None)
Quarter: 2006Q2

REPORT INFORMATION
  Report Type: 
  Country: None (occurrence: None)
  Receive Date: 20060426
  Receipt Date: 20060203
  Transmission Date: 20061013
  Serious: Yes (Other)
  Sender: FDA-Public Use
  Company Number: 2006018423

PATIENT
  Age: 78 Year
  Sex: Female
  Weight: 46.7205 kg

DRUGS (4)
  1. LYRICA [Suspect]
     Indication: FIBROMYALGIA
     Dosage: (50 MG, )
     Dates: start: 20060202
  2. LYRICA [Suspect]
     Indication: NEUROPATHY
     Dosage: (50 MG, )
     Dates: start: 20060202
  3. LEVAQUIN [Suspect]
     Indication: SINUSITIS
     Dates: start: 20060202
  4. ALL OTHER THERAPEUTIC PODUCTS (ALL OTHER THERAPEUTIC PRODUCTS) [Concomitant]

REACTIONS (8)
  - DIZZINESS [None]
  - DRUG INTERACTION [None]
  - FALL [None]
  - HEAD INJURY [None]
  - HEADACHE [None]
  - NAUSEA [None]
  - SYNCOPE [None]
  - TREMOR [None]
